FAERS Safety Report 5382535-0 (Version None)
Quarter: 2007Q3

REPORT INFORMATION
  Report Type: 
  Country: None (occurrence: None)
  Receive Date: 20070710
  Receipt Date: 20070630
  Transmission Date: 20080115
  Serious: Yes (Hospitalization, Other)
  Sender: FDA-Public Use
  Company Number: PHEH2007US09470

PATIENT
  Sex: Female

DRUGS (6)
  1. DIOVAN [Suspect]
     Indication: HYPERTENSION
     Dosage: 40 MG, UNK
     Dates: start: 20060401
  2. DIOVAN [Suspect]
     Dosage: 80 MG, UNK
     Dates: start: 20060326, end: 20070201
  3. SYNTHROID [Concomitant]
  4. ATIVAN [Concomitant]
  5. ATACAND [Concomitant]
     Dosage: 4 MG, UNK
     Dates: start: 20070201, end: 20070401
  6. CLONIDINE [Concomitant]
     Dosage: 1 MG, QD
     Route: 048

REACTIONS (14)
  - ABNORMAL SENSATION IN EYE [None]
  - BLOOD PRESSURE INADEQUATELY CONTROLLED [None]
  - FLUID RETENTION [None]
  - HEADACHE [None]
  - HYPOAESTHESIA [None]
  - LOSS OF CONSCIOUSNESS [None]
  - MUSCULAR WEAKNESS [None]
  - NAUSEA [None]
  - OEDEMA PERIPHERAL [None]
  - ROAD TRAFFIC ACCIDENT [None]
  - SYNCOPE [None]
  - TREMOR [None]
  - VISION BLURRED [None]
  - WEIGHT INCREASED [None]
